FAERS Safety Report 20656865 (Version 3)
Quarter: 2022Q2

REPORT INFORMATION
  Report Type: Spontaneous
  Country: US (occurrence: US)
  Receive Date: 20220331
  Receipt Date: 20220622
  Transmission Date: 20220721
  Serious: No
  Sender: FDA-Public Use
  Company Number: US-NEUROCRINE BIOSCIENCES INC.-2022NBI01935

PATIENT

DRUGS (5)
  1. INGREZZA [Suspect]
     Active Substance: VALBENAZINE
     Indication: Tardive dyskinesia
     Dosage: 40 MILLIGRAM, QD
     Route: 048
     Dates: start: 20220302, end: 20220312
  2. ABILIFY [Concomitant]
     Active Substance: ARIPIPRAZOLE
     Indication: Psychotic disorder
     Dosage: 15 MILLIGRAM
     Route: 048
     Dates: start: 20211101
  3. LEXAPRO [Concomitant]
     Active Substance: ESCITALOPRAM OXALATE
     Indication: Depression
     Dosage: 20 MILLIGRAM
     Route: 048
     Dates: start: 20211101
  4. BUSPAR [Concomitant]
     Active Substance: BUSPIRONE HYDROCHLORIDE
     Indication: Anxiety
     Dosage: 20 MILLIGRAM, BID
     Dates: start: 20220331
  5. ATIVAN [Concomitant]
     Active Substance: LORAZEPAM
     Indication: Akathisia
     Dosage: 1 MILLIGRAM, BID
     Route: 048
     Dates: start: 20220317

REACTIONS (1)
  - Urticaria [Recovered/Resolved]

NARRATIVE: CASE EVENT DATE: 20220301
